FAERS Safety Report 7253364-8 (Version None)
Quarter: 2011Q1

REPORT INFORMATION
  Report Type: 
  Country: None (occurrence: None)
  Receive Date: 20110129
  Receipt Date: 20100308
  Transmission Date: 20110831
  Serious: No
  Sender: FDA-Public Use
  Company Number: US-ABBOTT-10P-163-0631187-00

PATIENT
  Sex: Female
  Weight: 83.536 kg

DRUGS (2)
  1. HUMIRA [Suspect]
     Indication: PSORIATIC ARTHROPATHY
     Dates: start: 20090523
  2. HUMIRA [Suspect]
     Dates: start: 20090601

REACTIONS (1)
  - ARTHRALGIA [None]
